FAERS Safety Report 14170463 (Version 2)
Quarter: 2017Q4

REPORT INFORMATION
  Report Type: Report from Study
  Country: NL (occurrence: NL)
  Receive Date: 20171108
  Receipt Date: 20171123
  Transmission Date: 20180321
  Serious: No
  Sender: FDA-Public Use
  Company Number: NL-ASTRAZENECA-2017SE88221

PATIENT
  Age: 76 Year
  Sex: Female
  Weight: 79.1 kg

DRUGS (17)
  1. SALBUTAMOL [Concomitant]
     Active Substance: ALBUTEROL
     Indication: CHRONIC OBSTRUCTIVE PULMONARY DISEASE
     Dosage: 100 UG/DO AS NEEDED 8 TIMES PER DAY
     Route: 065
     Dates: start: 20160802
  2. QUETIAPINE. [Concomitant]
     Active Substance: QUETIAPINE
     Indication: EMOTIONAL DISTRESS
     Route: 065
     Dates: start: 20160607
  3. VORICONAZOLE. [Concomitant]
     Active Substance: VORICONAZOLE
     Indication: BRONCHOPULMONARY ASPERGILLOSIS
     Route: 065
     Dates: start: 20170825, end: 20170826
  4. NITROFURANTOIN. [Concomitant]
     Active Substance: NITROFURANTOIN
     Indication: URINARY TRACT INFECTION
     Route: 065
     Dates: start: 20170714, end: 20170728
  5. ACETYLCYSTEINE. [Concomitant]
     Active Substance: ACETYLCYSTEINE
     Indication: CHRONIC OBSTRUCTIVE PULMONARY DISEASE
     Route: 065
     Dates: start: 20160607
  6. CLOMIPRAMINE [Concomitant]
     Active Substance: CLOMIPRAMINE
     Indication: DEPRESSION
     Route: 065
     Dates: start: 201503
  7. BIOTIN [Concomitant]
     Active Substance: BIOTIN
     Indication: HYPOVITAMINOSIS
     Route: 065
     Dates: start: 20161130
  8. FLUTICASONE. [Concomitant]
     Active Substance: FLUTICASONE
     Indication: RHINITIS PROPHYLAXIS
     Route: 045
     Dates: start: 20161130
  9. ACALABRUTINIB. [Suspect]
     Active Substance: ACALABRUTINIB
     Indication: CHRONIC LYMPHOCYTIC LEUKAEMIA
     Route: 048
     Dates: start: 20160621
  10. MIDAZOLAM [Concomitant]
     Active Substance: MIDAZOLAM HYDROCHLORIDE
     Indication: SLEEP DISORDER
     Route: 065
     Dates: start: 201402
  11. CALCIUM CARBONATE COLECALCIFEROL [Concomitant]
     Indication: OSTEOPOROSIS PROPHYLAXIS
     Route: 065
     Dates: start: 1999
  12. BECLOMETASON/FORMOTEROL AEROSOL [Concomitant]
     Indication: CHRONIC OBSTRUCTIVE PULMONARY DISEASE
     Dosage: 100/6 UG/DO THREE TIMES PER DAY
     Route: 065
     Dates: start: 20160802
  13. CETOMACROGOL 1000 [Concomitant]
     Indication: DRY SKIN
     Route: 065
     Dates: start: 20161129
  14. PARACETAMOL [Concomitant]
     Active Substance: ACETAMINOPHEN
     Indication: HEADACHE
     Dosage: 1000.0MG AS REQUIRED
     Route: 065
     Dates: start: 20161204
  15. OMEPRAZOL [Concomitant]
     Active Substance: OMEPRAZOLE
     Indication: DYSPEPSIA
     Route: 065
     Dates: start: 20160810
  16. PREGABALIN. [Concomitant]
     Active Substance: PREGABALIN
     Indication: PERIPHERAL SENSORY NEUROPATHY
     Route: 065
     Dates: start: 20160907
  17. PARACETAMOL [Concomitant]
     Active Substance: ACETAMINOPHEN
     Indication: BACK PAIN
     Dosage: 1000.0MG AS REQUIRED
     Route: 065
     Dates: start: 20161204

REACTIONS (1)
  - Bronchopulmonary aspergillosis [Recovered/Resolved]

NARRATIVE: CASE EVENT DATE: 20170628
